FAERS Safety Report 7071550-7 (Version None)
Quarter: 2010Q4

REPORT INFORMATION
  Report Type: 
  Country: None (occurrence: None)
  Receive Date: 20101029
  Receipt Date: 20090922
  Transmission Date: 20110411
  Serious: Yes (Other)
  Sender: FDA-Public Use
  Company Number: A0808468A

PATIENT
  Age: 79 Year
  Sex: Female

DRUGS (3)
  1. ADVAIR DISKUS 100/50 [Suspect]
     Indication: ASTHMA
     Dosage: 1PUFF PER DAY
     Route: 055
     Dates: start: 20040101
  2. VENTOLIN [Concomitant]
  3. NEBULIZER [Concomitant]

REACTIONS (2)
  - CATARACT [None]
  - GLAUCOMA [None]
